FAERS Safety Report 8841095 (Version 5)
Quarter: 2015Q4

REPORT INFORMATION
  Report Type: Spontaneous
  Country: US (occurrence: US)
  Receive Date: 20121015
  Receipt Date: 20151111
  Transmission Date: 20160305
  Serious: Yes (Congenital Anomaly, Other)
  Sender: FDA-Public Use
  Company Number: US-ELI_LILLY_AND_COMPANY-US201210002831

PATIENT
  Weight: 3.35 kg

DRUGS (4)
  1. PROZAC [Suspect]
     Active Substance: FLUOXETINE HYDROCHLORIDE
     Indication: DEPRESSION
     Dosage: 1 DF, UNKNOWN
     Route: 064
  2. PRENATAL                           /00231801/ [Concomitant]
     Indication: VITAMIN SUPPLEMENTATION
     Route: 064
  3. VALTREX [Concomitant]
     Active Substance: VALACYCLOVIR HYDROCHLORIDE
     Indication: HERPES SIMPLEX
     Route: 064
  4. FLONASE                            /00908302/ [Concomitant]
     Active Substance: MOMETASONE FUROATE
     Indication: HYPERSENSITIVITY
     Route: 064

REACTIONS (8)
  - Ear infection [Unknown]
  - Conductive deafness [Unknown]
  - Pain in extremity [Recovering/Resolving]
  - Tympanic membrane perforation [Unknown]
  - Talipes [Unknown]
  - Ear disorder [Unknown]
  - Complex regional pain syndrome [Recovered/Resolved]
  - Foetal exposure during pregnancy [Recovered/Resolved]
